FAERS Safety Report 11313557 (Version 1)
Quarter: 2015Q3

REPORT INFORMATION
  Report Type: Spontaneous
  Country: US (occurrence: US)
  Receive Date: 20150727
  Receipt Date: 20150727
  Transmission Date: 20151125
  Serious: No
  Sender: FDA-Public Use
  Company Number: US-ABBVIE-14P-163-1268556-00

PATIENT
  Age: 74 Year
  Sex: Female
  Weight: 47.67 kg

DRUGS (2)
  1. SYNTHROID [Suspect]
     Active Substance: LEVOTHYROXINE SODIUM
     Indication: HYPOTHYROIDISM
  2. BLADDERWRACK- FUCUS VESICULOSUS DRY EXTRACT [Suspect]
     Active Substance: FUCUS VESICULOSUS
     Indication: NUTRITIONAL SUPPLEMENTATION
     Dates: start: 201407, end: 201407

REACTIONS (1)
  - Fatigue [Recovering/Resolving]

NARRATIVE: CASE EVENT DATE: 201407
